FAERS Safety Report 5359346-5 (Version None)
Quarter: 2007Q2

REPORT INFORMATION
  Report Type: 
  Country: None (occurrence: None)
  Receive Date: 20070615
  Receipt Date: 20070606
  Transmission Date: 20071010
  Serious: Yes (Hospitalization, Disabling, Other)
  Sender: FDA-Public Use
  Company Number: DK-PFIZER INC-2005137367

PATIENT
  Sex: Male

DRUGS (3)
  1. FRAGMIN [Suspect]
     Indication: EMBOLISM
     Dosage: FREQ:UNKNOWN
     Route: 065
     Dates: start: 20030423, end: 20030425
  2. ACETYLSALICYLIC ACID SRT [Concomitant]
     Route: 065
     Dates: start: 20030423, end: 20030425
  3. WARFARIN SODIUM [Concomitant]
     Route: 065
     Dates: start: 20030423, end: 20030425

REACTIONS (2)
  - CEREBRAL HAEMORRHAGE [None]
  - COGNITIVE DISORDER [None]
